FAERS Safety Report 9095170 (Version 1)
Quarter: 2013Q1

REPORT INFORMATION
  Report Type: Spontaneous
  Country: US (occurrence: None)
  Receive Date: 20130123
  Receipt Date: 20130123
  Transmission Date: 20140127
  Serious: Yes (Hospitalization)
  Sender: FDA-Public Use
  Company Number: JPI-P-029046

PATIENT
  Age: 46 Year
  Sex: Female

DRUGS (1)
  1. XYREM (500 MILLIGRAM/MILLILITERS, SOLUTION) (SODIUM OXYBATE) [Suspect]
     Indication: SOMNOLENCE
     Dates: start: 20110815

REACTIONS (5)
  - Somnolence [None]
  - Anxiety [None]
  - Drug ineffective [None]
  - Insomnia [None]
  - Chest pain [None]
